FAERS Safety Report 17135718 (Version 1)
Quarter: 2019Q4

REPORT INFORMATION
  Report Type: Spontaneous
  Country: CA (occurrence: CA)
  Receive Date: 20191210
  Receipt Date: 20191210
  Transmission Date: 20200122
  Serious: Yes (Disabling, Other)
  Sender: FDA-Public Use
  Company Number: CA-UCBSA-2019051810

PATIENT
  Age: 41 Year
  Sex: Female
  Weight: 90 kg

DRUGS (24)
  1. ETANERCEPT [Suspect]
     Active Substance: ETANERCEPT
     Indication: PSORIATIC ARTHROPATHY
  2. ETANERCEPT [Suspect]
     Active Substance: ETANERCEPT
     Indication: PSORIASIS
  3. IBUPROFEN. [Suspect]
     Active Substance: IBUPROFEN
     Indication: PRODUCT USED FOR UNKNOWN INDICATION
     Dosage: 600 MILLIGRAM
     Route: 048
  4. ETANERCEPT [Suspect]
     Active Substance: ETANERCEPT
     Indication: PSORIASIS
  5. ETANERCEPT [Suspect]
     Active Substance: ETANERCEPT
     Indication: RHEUMATOID ARTHRITIS
  6. ORENCIA [Suspect]
     Active Substance: ABATACEPT
     Indication: PSORIATIC ARTHROPATHY
     Route: 058
  7. BENADRYL [Concomitant]
     Active Substance: DIPHENHYDRAMINE HYDROCHLORIDE
     Indication: PRODUCT USED FOR UNKNOWN INDICATION
  8. ETANERCEPT [Suspect]
     Active Substance: ETANERCEPT
     Indication: RHEUMATOID ARTHRITIS
  9. METHOTREXATE. [Concomitant]
     Active Substance: METHOTREXATE
     Indication: PRODUCT USED FOR UNKNOWN INDICATION
     Dosage: 4 DOSAGE FORM, WEEKLY (QW)
     Route: 048
  10. NITRAZEPAM [Concomitant]
     Active Substance: NITRAZEPAM
     Indication: PRODUCT USED FOR UNKNOWN INDICATION
  11. ADALIMUMAB [Suspect]
     Active Substance: ADALIMUMAB
     Indication: PSORIATIC ARTHROPATHY
     Route: 058
  12. LEFLUNOMIDE. [Suspect]
     Active Substance: LEFLUNOMIDE
     Indication: PRODUCT USED FOR UNKNOWN INDICATION
     Route: 048
  13. GOLIMUMAB [Suspect]
     Active Substance: GOLIMUMAB
     Indication: PSORIATIC ARTHROPATHY
     Route: 058
  14. DEXILANT [Concomitant]
     Active Substance: DEXLANSOPRAZOLE
     Indication: PRODUCT USED FOR UNKNOWN INDICATION
  15. CERTOLIZUMAB PEGOL [Suspect]
     Active Substance: CERTOLIZUMAB PEGOL
     Indication: PSORIATIC ARTHROPATHY
     Route: 058
  16. CICLOSPORIN [Suspect]
     Active Substance: CYCLOSPORINE
     Indication: PRODUCT USED FOR UNKNOWN INDICATION
  17. ETANERCEPT [Suspect]
     Active Substance: ETANERCEPT
     Indication: PSORIASIS
  18. COLCHICINE. [Concomitant]
     Active Substance: COLCHICINE
     Indication: PRODUCT USED FOR UNKNOWN INDICATION
  19. FOLIC ACID. [Concomitant]
     Active Substance: FOLIC ACID
     Indication: PRODUCT USED FOR UNKNOWN INDICATION
  20. ETANERCEPT [Suspect]
     Active Substance: ETANERCEPT
     Indication: PSORIATIC ARTHROPATHY
  21. ETANERCEPT [Suspect]
     Active Substance: ETANERCEPT
     Indication: PSORIATIC ARTHROPATHY
  22. GRAVOL [Concomitant]
     Active Substance: DIMENHYDRINATE
     Indication: PRODUCT USED FOR UNKNOWN INDICATION
  23. ETANERCEPT [Suspect]
     Active Substance: ETANERCEPT
     Indication: RHEUMATOID ARTHRITIS
     Route: 058
  24. INFLIXIMAB [Suspect]
     Active Substance: INFLIXIMAB
     Indication: PSORIATIC ARTHROPATHY

REACTIONS (12)
  - Aspartate aminotransferase increased [Unknown]
  - Loss of personal independence in daily activities [Unknown]
  - Tenosynovitis [Unknown]
  - Drug hypersensitivity [Unknown]
  - Alanine aminotransferase increased [Unknown]
  - Nausea [Unknown]
  - C-reactive protein abnormal [Unknown]
  - Headache [Unknown]
  - Therapy non-responder [Unknown]
  - Contraindicated product administered [Unknown]
  - Enthesopathy [Unknown]
  - Synovitis [Unknown]
